FAERS Safety Report 22191158 (Version 1)
Quarter: 2023Q2

REPORT INFORMATION
  Report Type: Spontaneous
  Country: US (occurrence: None)
  Receive Date: 20230407
  Receipt Date: 20230407
  Transmission Date: 20230722
  Serious: Yes (Hospitalization)
  Sender: FDA-Public Use
  Company Number: None

PATIENT
  Age: 60 Year
  Sex: Female
  Weight: 56 kg

DRUGS (6)
  1. YESCARTA [Suspect]
     Active Substance: AXICABTAGENE CILOLEUCEL
     Indication: Follicular lymphoma
     Dosage: FREQUENCY : ONCE;?
     Route: 041
     Dates: start: 20230215, end: 20230215
  2. ACTEMRA [Concomitant]
     Active Substance: TOCILIZUMAB
     Dates: end: 20230219
  3. anakinra (Kineret) [Concomitant]
     Dates: end: 20230223
  4. dexAMETHasone (Decadron) injection [Concomitant]
     Dates: end: 20230227
  5. levETIRAcetam (Keppra [Concomitant]
     Dates: start: 20230214, end: 20230406
  6. lacosamide (Vimpat) [Concomitant]
     Dates: end: 20230315

REACTIONS (2)
  - Cytokine release syndrome [None]
  - Immune effector cell-associated neurotoxicity syndrome [None]

NARRATIVE: CASE EVENT DATE: 20230215
